FAERS Safety Report 23710108 (Version 2)
Quarter: 2024Q2

REPORT INFORMATION
  Report Type: Report from Study
  Country: ES (occurrence: ES)
  Receive Date: 20240405
  Receipt Date: 20240501
  Transmission Date: 20240715
  Serious: Yes (Hospitalization)
  Sender: FDA-Public Use
  Company Number: ES-ABBVIE-5705502

PATIENT
  Age: 60 Year
  Sex: Male
  Weight: 75 kg

DRUGS (2)
  1. CARBIDOPA\LEVODOPA [Suspect]
     Active Substance: CARBIDOPA\LEVODOPA
     Indication: Parkinson^s disease
     Route: 050
     Dates: start: 20210216, end: 2024
  2. CARBIDOPA\LEVODOPA [Suspect]
     Active Substance: CARBIDOPA\LEVODOPA
     Dosage: MORNING DOSE 8 ML, CONTINUOUS DOSE 2 ML/H AND EXTRA DOSE 3 ML
     Route: 050
     Dates: start: 2024

REACTIONS (2)
  - Diarrhoea haemorrhagic [Recovered/Resolved]
  - Viral diarrhoea [Recovered/Resolved]

NARRATIVE: CASE EVENT DATE: 20240315
